FAERS Safety Report 8460242-5 (Version None)
Quarter: 2012Q2

REPORT INFORMATION
  Report Type: 
  Country: None (occurrence: None)
  Receive Date: 20120622
  Receipt Date: 20120613
  Transmission Date: 20120825
  Serious: Yes (Other)
  Sender: FDA-Public Use
  Company Number: US-ABBOTT-12P-163-0946803-00

PATIENT
  Sex: Female
  Weight: 68.1 kg

DRUGS (16)
  1. CALCIUM [Concomitant]
     Indication: PRODUCT USED FOR UNKNOWN INDICATION
  2. IRON [Concomitant]
     Indication: PRODUCT USED FOR UNKNOWN INDICATION
  3. ZINC SULFATE [Concomitant]
     Indication: PRODUCT USED FOR UNKNOWN INDICATION
     Dosage: DAILY
  4. ATENOLOL [Concomitant]
     Indication: HYPERTENSION
  5. NITROGLYCERIN [Concomitant]
     Indication: SKIN FISSURES
     Dosage: DAILY
  6. GLUCOSAMINE CHONDROITIN [Concomitant]
     Indication: PRODUCT USED FOR UNKNOWN INDICATION
     Dosage: DAILY
  7. LOVASTATIN [Concomitant]
     Indication: BLOOD CHOLESTEROL INCREASED
  8. ASPIRIN [Concomitant]
     Indication: PRODUCT USED FOR UNKNOWN INDICATION
  9. AMLODIPINE [Concomitant]
     Indication: HYPERTENSION
  10. GENERIC LOMOTIL [Concomitant]
     Indication: GASTRIC DISORDER
     Dosage: IN THE MORNING
  11. ACETAMINOPHEN [Concomitant]
     Indication: ARTHRALGIA
     Dosage: 4 TIMES DAILY AS NEEDED
  12. ASCORBIC ACID [Concomitant]
     Indication: PRODUCT USED FOR UNKNOWN INDICATION
     Dosage: DAILY
  13. SUPER B COMPLEX [Concomitant]
     Indication: PRODUCT USED FOR UNKNOWN INDICATION
  14. MAGNESIUM [Concomitant]
     Indication: PRODUCT USED FOR UNKNOWN INDICATION
     Dosage: DAILY
  15. HUMIRA [Suspect]
     Indication: CROHN'S DISEASE
     Dates: start: 20111115
  16. CLONIDINE [Concomitant]
     Indication: HYPERTENSION

REACTIONS (2)
  - HYPOAESTHESIA [None]
  - CARPAL TUNNEL SYNDROME [None]
